FAERS Safety Report 11467678 (Version 1)
Quarter: 2015Q3

REPORT INFORMATION
  Report Type: Spontaneous
  Country: JP (occurrence: None)
  Receive Date: 20150903
  Receipt Date: 20150903
  Transmission Date: 20151125
  Serious: Yes (Hospitalization)
  Sender: FDA-Public Use
  Company Number: 2015-000794

PATIENT
  Age: 61 Year
  Sex: Female

DRUGS (2)
  1. BENET (RISEDRONATE SODIUM) TABLET [Suspect]
     Active Substance: RISEDRONATE SODIUM
     Indication: OSTEOPOROSIS
     Route: 048
     Dates: start: 20070605, end: 20120315
  2. PREDONINE [Suspect]
     Active Substance: PREDNISOLONE\PREDNISOLONE ACETATE\PREDNISOLONE SODIUM SUCCINATE
     Indication: AUTOIMMUNE HEPATITIS
     Route: 048
     Dates: start: 20070605

REACTIONS (8)
  - Osteomyelitis [None]
  - Mouth swelling [None]
  - Pain [None]
  - Exposed bone in jaw [None]
  - Dental fistula [None]
  - Purulent discharge [None]
  - Osteosclerosis [None]
  - Primary sequestrum [None]

NARRATIVE: CASE EVENT DATE: 20120307
